FAERS Safety Report 20151004 (Version 1)
Quarter: 2021Q4

REPORT INFORMATION
  Report Type: Spontaneous
  Country: IT (occurrence: IT)
  Receive Date: 20211206
  Receipt Date: 20211206
  Transmission Date: 20220303
  Serious: Yes (Other)
  Sender: FDA-Public Use
  Company Number: IT-NOVARTISPH-NVSC2021IT271808

PATIENT
  Age: 75 Year
  Sex: Male

DRUGS (1)
  1. BROLUCIZUMAB [Suspect]
     Active Substance: BROLUCIZUMAB
     Indication: Neovascular age-related macular degeneration
     Dosage: 6 MG, QMO
     Route: 047
     Dates: start: 20211007

REACTIONS (5)
  - Retinal deposits [Recovered/Resolved]
  - Corneal endotheliitis [Recovered/Resolved]
  - Iridocyclitis [Recovered/Resolved]
  - Uveitis [Recovered/Resolved]
  - Vitreous floaters [Recovered/Resolved]

NARRATIVE: CASE EVENT DATE: 20211029
